FAERS Safety Report 8297327-2 (Version None)
Quarter: 2012Q2

REPORT INFORMATION
  Report Type: 
  Country: None (occurrence: None)
  Receive Date: 20120419
  Receipt Date: 20120410
  Transmission Date: 20120825
  Serious: Yes (Other)
  Sender: FDA-Public Use
  Company Number: US-ABBOTT-12P-163-0891603-00

PATIENT
  Sex: Female
  Weight: 63.106 kg

DRUGS (6)
  1. ZOLOFT [Concomitant]
     Indication: DEPRESSION
  2. BENTYL [Concomitant]
     Indication: PAIN
  3. VSL 3 [Concomitant]
     Indication: PRODUCT USED FOR UNKNOWN INDICATION
  4. HUMIRA [Suspect]
     Indication: CROHN'S DISEASE
     Dates: start: 20110501
  5. HUMIRA [Suspect]
  6. LOESTRIN 1.5/30 [Concomitant]
     Indication: CONTRACEPTION

REACTIONS (19)
  - NAUSEA [None]
  - INFLAMMATORY BOWEL DISEASE [None]
  - SLEEP DISORDER [None]
  - FATIGUE [None]
  - DIARRHOEA [None]
  - DYSPEPSIA [None]
  - ABDOMINAL DISTENSION [None]
  - DRY MOUTH [None]
  - HEADACHE [None]
  - CONSTIPATION [None]
  - OROPHARYNGEAL BLISTERING [None]
  - ABDOMINAL PAIN [None]
  - ALOPECIA [None]
  - SYSTEMIC LUPUS ERYTHEMATOSUS [None]
  - COLITIS ULCERATIVE [None]
  - NIGHT SWEATS [None]
  - ANXIETY [None]
  - TRANSAMINASES INCREASED [None]
  - ARTHRALGIA [None]
